FAERS Safety Report 10020945 (Version 1)
Quarter: 2014Q1

REPORT INFORMATION
  Report Type: Spontaneous
  Country: US (occurrence: US)
  Receive Date: 20140319
  Receipt Date: 20140319
  Transmission Date: 20141002
  Serious: No
  Sender: FDA-Public Use
  Company Number: US-B.I. PHARMACEUTICALS,INC./RIDGEFIELD-2014-BI-10841BP

PATIENT
  Sex: Male
  Weight: 98 kg

DRUGS (3)
  1. COMBIVENT [Suspect]
     Indication: CHRONIC OBSTRUCTIVE PULMONARY DISEASE
     Dosage: STRENGTH: 20 MCG / 100 MCG; DAILY DOSE: 80 MCG/400 MCG
     Route: 055
     Dates: start: 201306
  2. PERCOSET [Concomitant]
     Indication: BACK PAIN
     Route: 048
  3. ZANTAC [Concomitant]
     Indication: HIATUS HERNIA
     Dosage: 300 MG
     Route: 048

REACTIONS (1)
  - Drug ineffective [Recovered/Resolved]
